FAERS Safety Report 24249176 (Version 3)
Quarter: 2024Q4

REPORT INFORMATION
  Report Type: Report from Study
  Country: US (occurrence: US)
  Receive Date: 20240826
  Receipt Date: 20241015
  Transmission Date: 20250115
  Serious: Yes (Other)
  Sender: PFIZER
  Company Number: US-PFIZER INC-202400225825

PATIENT
  Age: 40 Year
  Sex: Female

DRUGS (3)
  1. TUKYSA [Suspect]
     Active Substance: TUCATINIB
     Dosage: 300 MG, 2X/DAY
     Dates: start: 20240703, end: 2024
  2. TUKYSA [Suspect]
     Active Substance: TUCATINIB
     Dosage: 300 MG, 2X/DAY
     Dates: start: 2024, end: 2024
  3. TUKYSA [Suspect]
     Active Substance: TUCATINIB
     Dosage: 300 MG, EVERY 12 HOURS
     Route: 048
     Dates: start: 2024

REACTIONS (6)
  - Blood magnesium decreased [Unknown]
  - Blood potassium decreased [Unknown]
  - Laboratory test abnormal [Unknown]
  - Arthritis [Unknown]
  - Pollakiuria [Unknown]
  - Polydipsia [Unknown]

NARRATIVE: CASE EVENT DATE: 20240101
